FAERS Safety Report 24316627 (Version 1)
Quarter: 2024Q3

REPORT INFORMATION
  Report Type: Spontaneous
  Country: JP (occurrence: JP)
  Receive Date: 20240913
  Receipt Date: 20240913
  Transmission Date: 20241017
  Serious: Yes (Other)
  Sender: PFIZER
  Company Number: JP-ONO-2024JP018839

PATIENT
  Age: 7 Decade
  Sex: Female

DRUGS (2)
  1. MEKTOVI [Suspect]
     Active Substance: BINIMETINIB
     Indication: Thyroid cancer
     Dosage: UNK
     Route: 048
  2. BRAFTOVI [Suspect]
     Active Substance: ENCORAFENIB
     Indication: Thyroid cancer
     Dosage: UNK
     Route: 048

REACTIONS (1)
  - Serous retinal detachment [Not Recovered/Not Resolved]
